FAERS Safety Report 6883719-2 (Version None)
Quarter: 2010Q3

REPORT INFORMATION
  Report Type: 
  Country: None (occurrence: None)
  Receive Date: 20100729
  Receipt Date: 20100726
  Transmission Date: 20110219
  Serious: Yes (Congenital Anomaly)
  Sender: FDA-Public Use
  Company Number: A0872552A

PATIENT
  Sex: Male

DRUGS (8)
  1. COMBIVIR [Suspect]
     Indication: HIV INFECTION
     Dates: start: 20050120
  2. KALETRA [Suspect]
     Indication: HIV INFECTION
     Dates: start: 20050120
  3. VIRACEPT [Suspect]
     Indication: HIV INFECTION
     Dates: start: 20050227, end: 20050329
  4. BACTRIM [Concomitant]
  5. COCAINE [Concomitant]
  6. FERROUS SULFATE TAB [Concomitant]
  7. NYSTATIN [Concomitant]
  8. TOBACCO [Concomitant]

REACTIONS (2)
  - ATRIAL SEPTAL DEFECT [None]
  - DRUG EXPOSURE DURING PREGNANCY [None]
